FAERS Safety Report 8297741 (Version 6)
Quarter: 2013Q3

REPORT INFORMATION
  Report Type: Report from Study
  Country: US (occurrence: US)
  Receive Date: 20111219
  Receipt Date: 20130717
  Transmission Date: 20140515
  Serious: Yes (Congenital Anomaly, Other)
  Sender: FDA-Public Use
  Company Number: US-UCBSA-047556

PATIENT
  Age: 0 None
  Sex: Male
  Weight: 2.15 kg

DRUGS (8)
  1. KEPPRA XR [Suspect]
     Indication: EPILEPSY
     Dosage: TOTAL DAILY DOSE : 3000 MG
     Route: 064
     Dates: end: 20110615
  2. KEPPRA XR [Suspect]
     Indication: CONVULSION
     Dosage: TOTAL DAILY DOSE : 3000 MG
     Route: 064
     Dates: end: 20110615
  3. FOLIC ACID [Concomitant]
     Indication: PREGNANCY
     Route: 064
     Dates: start: 2010, end: 20110615
  4. TRAZODONE [Concomitant]
     Indication: ANXIETY
     Route: 064
     Dates: start: 2010, end: 2010
  5. TYLENOL [Concomitant]
     Indication: HEADACHE
     Dosage: 1 CAPSULE AS NEEDED
     Route: 064
     Dates: end: 20110615
  6. PRENATAL COMPLETE [Concomitant]
     Indication: VITAMIN SUPPLEMENTATION
     Route: 064
     Dates: end: 20110615
  7. PEPCID AC [Concomitant]
     Indication: DYSPEPSIA
     Route: 064
     Dates: end: 20110615
  8. FERROUS SULFATE [Concomitant]
     Indication: ANAEMIA
     Route: 064

REACTIONS (6)
  - Premature baby [Unknown]
  - Trisomy 21 [Unknown]
  - Abnormal palmar/plantar creases [Unknown]
  - Hypotonia [Unknown]
  - Dysmorphism [Unknown]
  - Foetal exposure during pregnancy [Recovered/Resolved]
